FAERS Safety Report 10610695 (Version 3)
Quarter: 2016Q2

REPORT INFORMATION
  Report Type: Report from Study
  Country: US (occurrence: US)
  Receive Date: 20141126
  Receipt Date: 20160616
  Transmission Date: 20160815
  Serious: Yes (Hospitalization)
  Sender: FDA-Public Use
  Company Number: US-ARIAD-2014US003493

PATIENT

DRUGS (2)
  1. ICLUSIG [Suspect]
     Active Substance: PONATINIB
     Indication: CHRONIC MYELOID LEUKAEMIA
     Dosage: 45 MG, QD
     Route: 048
  2. FIORICET [Concomitant]
     Active Substance: ACETAMINOPHEN\BUTALBITAL\CAFFEINE
     Indication: PRODUCT USED FOR UNKNOWN INDICATION
     Dosage: 50-300-40 MG
     Route: 048

REACTIONS (13)
  - Arthralgia [Unknown]
  - Localised infection [Recovered/Resolved]
  - Haematemesis [Recovered/Resolved]
  - Sialoadenitis [Unknown]
  - Decubitus ulcer [Not Recovered/Not Resolved]
  - Gastric ulcer [Recovered/Resolved]
  - Asthenia [Unknown]
  - Weight decreased [Unknown]
  - Back pain [Unknown]
  - Oedema peripheral [Unknown]
  - Dry mouth [Unknown]
  - Anaemia [Recovered/Resolved]
  - Dyspnoea [Unknown]
